FAERS Safety Report 5166383-2 (Version None)
Quarter: 2006Q4

REPORT INFORMATION
  Report Type: 
  Country: None (occurrence: None)
  Receive Date: 20061129
  Receipt Date: 20061114
  Transmission Date: 20070319
  Serious: Yes (Hospitalization)
  Sender: FDA-Public Use
  Company Number: 2006S1010677

PATIENT
  Age: 56 Year
  Sex: Male
  Weight: 87.5442 kg

DRUGS (5)
  1. FENTANYL TRANSDERMAL SYSTEM [Suspect]
     Indication: BACK PAIN
     Dosage: 75 UG/HR; Q3D; TDER
     Route: 062
     Dates: start: 20061001, end: 20061109
  2. FENTANYL TRANSDERMAL SYSTEM [Suspect]
     Indication: BACK PAIN
     Dosage: 75 UG/HR; Q3D; TDER
     Route: 062
     Dates: start: 20061112
  3. OLMESARTAN MEDOXOMIL (CON.) [Concomitant]
  4. SERTRALINE (CON.) [Concomitant]
  5. VICODIN (CON.) [Concomitant]

REACTIONS (5)
  - BODY TEMPERATURE INCREASED [None]
  - DRUG EFFECT DECREASED [None]
  - DRUG EFFECT INCREASED [None]
  - DRUG WITHDRAWAL SYNDROME [None]
  - INADEQUATE ANALGESIA [None]
